FAERS Safety Report 25429952 (Version 2)
Quarter: 2025Q3

REPORT INFORMATION
  Report Type: Spontaneous
  Country: KR (occurrence: KR)
  Receive Date: 20250612
  Receipt Date: 20250810
  Transmission Date: 20251020
  Serious: Yes (Other)
  Sender: ALEXION PHARMACEUTICALS
  Company Number: KR-AstraZeneca-CH-00888698A

PATIENT

DRUGS (3)
  1. DURVALUMAB [Suspect]
     Active Substance: DURVALUMAB
     Route: 065
  2. TREMELIMUMAB [Concomitant]
     Active Substance: TREMELIMUMAB
     Route: 065
  3. Viriva [Concomitant]
     Route: 065

REACTIONS (3)
  - Oesophageal varices haemorrhage [Unknown]
  - Haemorrhage intracranial [Unknown]
  - Thrombocytopenia [Unknown]
